FAERS Safety Report 8001242-9 (Version None)
Quarter: 2011Q4

REPORT INFORMATION
  Report Type: 
  Country: None (occurrence: None)
  Receive Date: 20111222
  Receipt Date: 20111214
  Transmission Date: 20120403
  Serious: No
  Sender: FDA-Public Use
  Company Number: US-ELI_LILLY_AND_COMPANY-US201112005361

PATIENT
  Sex: Male

DRUGS (2)
  1. ADCIRCA [Suspect]
     Indication: PULMONARY ARTERIAL HYPERTENSION
     Dosage: UNK, UNKNOWN
  2. LETAIRIS [Concomitant]

REACTIONS (4)
  - VISION BLURRED [None]
  - PAIN [None]
  - ABDOMINAL DISCOMFORT [None]
  - FATIGUE [None]
